FAERS Safety Report 5780340-4 (Version None)
Quarter: 2008Q2

REPORT INFORMATION
  Report Type: 
  Country: None (occurrence: None)
  Receive Date: 20080620
  Receipt Date: 20080612
  Transmission Date: 20081010
  Serious: Yes (Other)
  Sender: FDA-Public Use
  Company Number: B0376971A

PATIENT
  Age: 45 Year
  Sex: Female

DRUGS (9)
  1. PAROXETINE HCL [Suspect]
     Dosage: 30MG PER DAY
     Route: 065
     Dates: start: 19991201
  2. ATENOLOL [Concomitant]
     Indication: HYPERTENSION
     Dates: start: 20030101
  3. TAMOXIFEN CITRATE [Concomitant]
     Dates: start: 19960101, end: 19980101
  4. TEMAZEPAM [Concomitant]
     Dates: start: 20000101
  5. ZOPICLONE [Concomitant]
     Dates: start: 20000101
  6. OMEPRAZOLE [Concomitant]
     Dates: start: 20000101
  7. METFORMIN [Concomitant]
     Dates: start: 20050101
  8. HRT [Concomitant]
     Dates: start: 20020601, end: 20020701
  9. ORLISTAT [Concomitant]
     Dates: start: 20050101

REACTIONS (15)
  - AGITATION [None]
  - CONFUSIONAL STATE [None]
  - DISTURBANCE IN ATTENTION [None]
  - DIZZINESS [None]
  - DRUG WITHDRAWAL SYNDROME [None]
  - FATIGUE [None]
  - HYPERHIDROSIS [None]
  - INFLUENZA LIKE ILLNESS [None]
  - MEMORY IMPAIRMENT [None]
  - NIGHTMARE [None]
  - PALPITATIONS [None]
  - SUICIDAL IDEATION [None]
  - SUICIDE ATTEMPT [None]
  - TREMOR [None]
  - VERTIGO [None]
